FAERS Safety Report 23442859 (Version 1)
Quarter: 2024Q1

REPORT INFORMATION
  Report Type: Spontaneous
  Country: US (occurrence: US)
  Receive Date: 20240125
  Receipt Date: 20240125
  Transmission Date: 20240410
  Serious: Yes (Hospitalization, Disabling)
  Sender: FDA-Public Use
  Company Number: US-TEVA-VS-3138788

PATIENT
  Age: 76 Year
  Sex: Female
  Weight: 62 kg

DRUGS (1)
  1. COPAXONE [Suspect]
     Active Substance: GLATIRAMER ACETATE
     Indication: Multiple sclerosis
     Dosage: TIME INTERVAL: 0.33333333 WEEKS
     Route: 065

REACTIONS (10)
  - Hospitalisation [Recovered/Resolved]
  - Movement disorder [Unknown]
  - Memory impairment [Unknown]
  - Gait disturbance [Unknown]
  - Visual impairment [Unknown]
  - Walking disability [Unknown]
  - Walking aid user [Unknown]
  - Adverse event [Unknown]
  - Hypoaesthesia [Recovered/Resolved]
  - Insurance issue [Unknown]
